FAERS Safety Report 21450103 (Version 1)
Quarter: 2022Q4

REPORT INFORMATION
  Report Type: Spontaneous
  Country: US (occurrence: US)
  Receive Date: 20221013
  Receipt Date: 20221013
  Transmission Date: 20230112
  Serious: No
  Sender: FDA-Public Use
  Company Number: US-AUROBINDO-AUR-APL-2022-009897

PATIENT

DRUGS (1)
  1. CLINDAMYCIN [Suspect]
     Active Substance: CLINDAMYCIN
     Indication: Tooth disorder
     Dosage: UNK
     Route: 065

REACTIONS (6)
  - Scar [Unknown]
  - Cardiac disorder [Unknown]
  - Renal disorder [Unknown]
  - Rash [Unknown]
  - Scab [Unknown]
  - Gastric disorder [Unknown]
